FAERS Safety Report 9729940 (Version 1)
Quarter: 2013Q4

REPORT INFORMATION
  Report Type: Spontaneous
  Country: JP (occurrence: None)
  Receive Date: 20131203
  Receipt Date: 20131203
  Transmission Date: 20140711
  Serious: Yes (Other)
  Sender: FDA-Public Use
  Company Number: 2013P1021414

PATIENT
  Age: 79 Year
  Sex: Male

DRUGS (2)
  1. CEFTRIAZONE SODIUM (CEFTRIAXONE SODIUM) [Suspect]
     Dosage: GM; QD; IV
  2. AMIKACIN [Suspect]

REACTIONS (2)
  - Calculus urinary [None]
  - Calculus urinary [None]
